FAERS Safety Report 5304951-5 (Version None)
Quarter: 2007Q2

REPORT INFORMATION
  Report Type: 
  Country: None (occurrence: None)
  Receive Date: 20070423
  Receipt Date: 20070411
  Transmission Date: 20071010
  Serious: Yes (Other)
  Sender: FDA-Public Use
  Company Number: FR-PFIZER INC-2007029439

PATIENT
  Sex: Male

DRUGS (1)
  1. SUTENT [Suspect]
     Indication: ANGIOSARCOMA

REACTIONS (3)
  - ANOREXIA [None]
  - SOMNOLENCE [None]
  - WATER POLLUTION [None]
